FAERS Safety Report 20046694 (Version 1)
Quarter: 2021Q4

REPORT INFORMATION
  Report Type: Spontaneous
  Country: US (occurrence: US)
  Receive Date: 20211109
  Receipt Date: 20211109
  Transmission Date: 20220304
  Serious: Yes (Death, Hospitalization)
  Sender: FDA-Public Use
  Company Number: US-JNJFOC-20211100678

PATIENT
  Age: 37 Year
  Sex: Female
  Weight: 49 kg

DRUGS (1)
  1. TYLENOL [Suspect]
     Active Substance: ACETAMINOPHEN
     Indication: Suicide attempt
     Dosage: TOTAL DOSE OF 15000 MG (15 GRAMS) ON 29-MAY-2000
     Route: 048

REACTIONS (10)
  - Completed suicide [Fatal]
  - Staphylococcal infection [Fatal]
  - Escherichia infection [Fatal]
  - Klebsiella infection [Fatal]
  - Chest X-ray abnormal [Fatal]
  - Acute hepatic failure [Fatal]
  - Multiple organ dysfunction syndrome [Fatal]
  - Acute kidney injury [Fatal]
  - Intra-abdominal haemorrhage [Fatal]
  - Intentional overdose [Fatal]

NARRATIVE: CASE EVENT DATE: 20000605
